FAERS Safety Report 20966803 (Version 1)
Quarter: 2022Q2

REPORT INFORMATION
  Report Type: Spontaneous
  Country: ES (occurrence: ES)
  Receive Date: 20220616
  Receipt Date: 20220616
  Transmission Date: 20220721
  Serious: Yes (Hospitalization, Other)
  Sender: FDA-Public Use
  Company Number: ES-Accord-266283

PATIENT
  Age: 59 Year
  Sex: Female

DRUGS (2)
  1. METHOTREXATE [Suspect]
     Active Substance: METHOTREXATE
     Indication: Systemic lupus erythematosus
  2. HYDROXYCHLOROQUINE [Concomitant]
     Active Substance: HYDROXYCHLOROQUINE
     Indication: Systemic lupus erythematosus

REACTIONS (7)
  - Disseminated varicella zoster virus infection [Recovered/Resolved]
  - Off label use [Unknown]
  - Ophthalmic herpes zoster [Recovered/Resolved]
  - Varicella meningitis [Recovered/Resolved]
  - Cerebrovascular disorder [Recovered/Resolved]
  - Carotid artery stenosis [Recovered/Resolved]
  - Cerebral artery stenosis [Recovered/Resolved]
